FAERS Safety Report 15118445 (Version 1)
Quarter: 2018Q3

REPORT INFORMATION
  Report Type: Spontaneous
  Country: FR (occurrence: FR)
  Receive Date: 20180708
  Receipt Date: 20180708
  Transmission Date: 20181010
  Serious: Yes (Death)
  Sender: FDA-Public Use
  Company Number: FR-BAXTER-2018BAX018496

PATIENT
  Age: 31 Year
  Sex: Male
  Weight: 95 kg

DRUGS (11)
  1. AMBISOME [Suspect]
     Active Substance: AMPHOTERICIN B
     Indication: INFECTION
     Route: 042
     Dates: start: 20180518, end: 20180528
  2. ARACYTINE [Suspect]
     Active Substance: CYTARABINE
     Indication: LYMPHOMA
     Route: 042
     Dates: start: 20180524, end: 20180526
  3. MESNA EG [Suspect]
     Active Substance: MESNA
     Indication: PROPHYLAXIS
     Route: 042
     Dates: start: 20180523, end: 20180527
  4. VANCOMYCINE SANDOZ [Suspect]
     Active Substance: VANCOMYCIN
     Indication: INFECTION
     Route: 042
     Dates: start: 20180518, end: 20180529
  5. LASILIX [Suspect]
     Active Substance: FUROSEMIDE
     Indication: PRODUCT USED FOR UNKNOWN INDICATION
     Route: 042
     Dates: start: 20180525, end: 20180605
  6. ONDANSETRON ACCORD [Suspect]
     Active Substance: ONDANSETRON
     Indication: NAUSEA
     Route: 042
     Dates: start: 20180525, end: 20180529
  7. IMIPENEM AND CILASTATIN [Suspect]
     Active Substance: CILASTATIN SODIUM\IMIPENEM
     Indication: INFECTION
     Route: 042
     Dates: start: 20180526, end: 20180608
  8. HOLOXAN 2000 MG, POUDRE POUR USAGE PARENT?RAL [Suspect]
     Active Substance: IFOSFAMIDE
     Indication: LYMPHOMA
     Route: 042
     Dates: start: 20180524, end: 20180527
  9. ZELITREX [Suspect]
     Active Substance: VALACYCLOVIR HYDROCHLORIDE
     Indication: INFECTION
     Route: 048
     Dates: start: 20180517, end: 20180604
  10. CELLTOP 100 MG/5 ML, SOLUTION INJECTABLE POUR PERFUSION [Suspect]
     Active Substance: ETOPOSIDE
     Indication: LYMPHOMA
     Route: 042
     Dates: start: 20180524, end: 20180525
  11. OMEPRAZOLE MYLAN [Suspect]
     Active Substance: OMEPRAZOLE
     Indication: PRODUCT USED FOR UNKNOWN INDICATION
     Route: 042
     Dates: start: 20180524, end: 20180609

REACTIONS (2)
  - Acute kidney injury [Fatal]
  - Osmotic demyelination syndrome [Fatal]

NARRATIVE: CASE EVENT DATE: 20180527
